FAERS Safety Report 18334818 (Version 2)
Quarter: 2021Q2

REPORT INFORMATION
  Report Type: Other
  Country: CA (occurrence: CA)
  Receive Date: 20201001
  Receipt Date: 20210625
  Transmission Date: 20210717
  Serious: Yes (Hospitalization)
  Sender: FDA-Public Use
  Company Number: CA-APOTEX-2020AP018755

PATIENT
  Age: 84 Year
  Sex: Male

DRUGS (2)
  1. BICALUTAMIDE. [Suspect]
     Active Substance: BICALUTAMIDE
     Indication: PRODUCT USED FOR UNKNOWN INDICATION
     Dosage: UNK
     Route: 048
  2. ELIGARD [Suspect]
     Active Substance: LEUPROLIDE ACETATE
     Indication: PROSTATE CANCER
     Dosage: 22.5 MILLIGRAM (1 EVERY 3 MONTHS)
     Route: 065

REACTIONS (8)
  - Bladder disorder [Unknown]
  - Asthenia [Unknown]
  - Fatigue [Unknown]
  - Cardiac murmur [Unknown]
  - Mobility decreased [Unknown]
  - Confusional state [Unknown]
  - Decreased appetite [Unknown]
  - Tachycardia [Unknown]
